FAERS Safety Report 5048799-8 (Version None)
Quarter: 2006Q3

REPORT INFORMATION
  Report Type: 
  Country: None (occurrence: None)
  Receive Date: 20060705
  Receipt Date: 20060616
  Transmission Date: 20061208
  Serious: Yes (Hospitalization)
  Sender: FDA-Public Use
  Company Number: JP200606004433

PATIENT
  Age: 54 Year
  Sex: Female

DRUGS (1)
  1. GEMZAR [Suspect]
     Indication: TRACHEAL CANCER
     Dosage: INTRAVENOUS
     Route: 042
     Dates: start: 20050128, end: 20051202

REACTIONS (4)
  - COUGH [None]
  - FATIGUE [None]
  - NEOPLASM PROGRESSION [None]
  - STENT OCCLUSION [None]
